FAERS Safety Report 4654859-3 (Version None)
Quarter: 2005Q2

REPORT INFORMATION
  Report Type: 
  Country: None (occurrence: None)
  Receive Date: 20050506
  Receipt Date: 20050503
  Transmission Date: 20051028
  Serious: Yes (Hospitalization)
  Sender: FDA-Public Use
  Company Number: DE-MERCK-0505DEU00026

PATIENT
  Age: 49 Year
  Sex: Male

DRUGS (2)
  1. COZAAR [Suspect]
     Route: 048
     Dates: start: 20030101
  2. DIURETIC (UNSPECIFIED) [Concomitant]
     Route: 048

REACTIONS (1)
  - MYOSITIS [None]
